FAERS Safety Report 7120353-3 (Version None)
Quarter: 2010Q4

REPORT INFORMATION
  Report Type: 
  Country: None (occurrence: None)
  Receive Date: 20101124
  Receipt Date: 20101116
  Transmission Date: 20110411
  Serious: Yes (Death)
  Sender: FDA-Public Use
  Company Number: US-BIOGENIDEC-2010BI020697

PATIENT
  Age: 74 Year
  Sex: Male

DRUGS (1)
  1. AVONEX [Suspect]
     Indication: MULTIPLE SCLEROSIS
     Route: 030
     Dates: start: 20061215, end: 20071001

REACTIONS (3)
  - LOWER RESPIRATORY TRACT INFECTION [None]
  - MULTIPLE SCLEROSIS [None]
  - PNEUMONIA [None]
